FAERS Safety Report 23353564 (Version 2)
Quarter: 2024Q1

REPORT INFORMATION
  Report Type: Spontaneous
  Country: FR (occurrence: None)
  Receive Date: 20231231
  Receipt Date: 20240209
  Transmission Date: 20240410
  Serious: Yes (Death)
  Sender: FDA-Public Use
  Company Number: 2023A294268

PATIENT
  Age: 62 Year
  Sex: Male
  Weight: 66 kg

DRUGS (18)
  1. TICAGRELOR [Suspect]
     Active Substance: TICAGRELOR
     Indication: Myocardial infarction
     Dosage: 1-0-1
     Route: 048
     Dates: start: 20231202, end: 20231214
  2. CEFTRIAXONE [Concomitant]
     Active Substance: CEFTRIAXONE\CEFTRIAXONE SODIUM
  3. IPRATROPIUM BROMIDE [Concomitant]
     Active Substance: IPRATROPIUM BROMIDE\IPRATROPIUM BROMIDE ANHYDROUS
  4. ACETAMINOPHEN [Concomitant]
     Active Substance: ACETAMINOPHEN
  5. VERAPAMIL HYDROCHLORIDE [Concomitant]
     Active Substance: VERAPAMIL HYDROCHLORIDE
  6. LITHIUM CARBONATE [Concomitant]
     Active Substance: LITHIUM CARBONATE
  7. PIPERACILLIN SODIUM\TAZOBACTAM SODIUM [Concomitant]
     Active Substance: PIPERACILLIN SODIUM\TAZOBACTAM SODIUM
  8. TRIHEXYPHENIDYL HYDROCHLORIDE [Concomitant]
     Active Substance: TRIHEXYPHENIDYL HYDROCHLORIDE
  9. PANTOPRAZOLE [Concomitant]
     Active Substance: PANTOPRAZOLE
  10. LOVENOX [Concomitant]
     Active Substance: ENOXAPARIN SODIUM
  11. ALBUTEROL [Concomitant]
     Active Substance: ALBUTEROL
  12. ATORVASTATIN [Concomitant]
     Active Substance: ATORVASTATIN
  13. TRIMEPRAZINE [Concomitant]
     Active Substance: TRIMEPRAZINE
  14. TEMESTA [Concomitant]
  15. SPIRAMYCIN [Concomitant]
     Active Substance: SPIRAMYCIN
  16. VALPROATE SODIUM [Concomitant]
     Active Substance: VALPROATE SODIUM
  17. KARDEGIC [Concomitant]
     Active Substance: ASPIRIN DL-LYSINE
  18. OLANZAPINE [Concomitant]
     Active Substance: OLANZAPINE

REACTIONS (2)
  - Dyspnoea [Fatal]
  - Condition aggravated [Fatal]

NARRATIVE: CASE EVENT DATE: 20231212
